FAERS Safety Report 23093990 (Version 1)
Quarter: 2023Q4

REPORT INFORMATION
  Report Type: Spontaneous
  Country: CA (occurrence: CA)
  Receive Date: 20231023
  Receipt Date: 20231023
  Transmission Date: 20240110
  Serious: Yes (Other)
  Sender: FDA-Public Use
  Company Number: None

PATIENT
  Age: 49 Year
  Sex: Female

DRUGS (2)
  1. SEMAGLUTIDE [Suspect]
     Active Substance: SEMAGLUTIDE
     Indication: Product used for unknown indication
     Dosage: UNK
  2. RINVOQ [Suspect]
     Active Substance: UPADACITINIB
     Indication: Psoriatic arthropathy
     Dosage: 15 MG, QD
     Route: 048

REACTIONS (12)
  - Dyspepsia [Unknown]
  - Nausea [Unknown]
  - Bronchitis [Unknown]
  - Fluid replacement [Unknown]
  - Gastrointestinal disorder [Unknown]
  - Menopause [Unknown]
  - Muscle spasms [Unknown]
  - Oral herpes [Unknown]
  - Psoriasis [Unknown]
  - Stomatitis [Unknown]
  - Suicidal ideation [Unknown]
  - Therapeutic product effect incomplete [Unknown]
